FAERS Safety Report 22091042 (Version 3)
Quarter: 2023Q2

REPORT INFORMATION
  Report Type: Spontaneous
  Country: AU (occurrence: AU)
  Receive Date: 20230314
  Receipt Date: 20230406
  Transmission Date: 20230721
  Serious: No
  Sender: FDA-Public Use
  Company Number: AU-UCBSA-2023009733

PATIENT

DRUGS (1)
  1. NEUPRO [Suspect]
     Active Substance: ROTIGOTINE
     Indication: Product used for unknown indication
     Dosage: 8 MILLIGRAM
     Route: 062

REACTIONS (3)
  - Skin irritation [Unknown]
  - Pruritus [Unknown]
  - Product adhesion issue [Unknown]
